FAERS Safety Report 11247087 (Version 5)
Quarter: 2015Q4

REPORT INFORMATION
  Report Type: Spontaneous
  Country: US (occurrence: US)
  Receive Date: 20150708
  Receipt Date: 20151214
  Transmission Date: 20160304
  Serious: No
  Sender: FDA-Public Use
  Company Number: US-PFIZER INC-2015221785

PATIENT
  Age: 63 Year
  Sex: Female
  Weight: 62 kg

DRUGS (4)
  1. SUTENT [Suspect]
     Active Substance: SUNITINIB MALATE
     Dosage: 25 MG, CYCLIC ((2WEEKS ON / 1WEEK OFF))
     Dates: start: 20140601
  2. SUTENT [Suspect]
     Active Substance: SUNITINIB MALATE
     Dosage: 25 MG, 1X/DAY
     Dates: start: 201406
  3. SUTENT [Suspect]
     Active Substance: SUNITINIB MALATE
     Indication: METASTATIC RENAL CELL CARCINOMA
     Dosage: 50 MG, CYCLIC (28 DAYS ON / 14 DAYS OFF )
     Route: 048
  4. SUTENT [Suspect]
     Active Substance: SUNITINIB MALATE
     Dosage: 37.5 MG, CYCLIC (2WEEKS ON / 1WEEK OFF)

REACTIONS (13)
  - Oral discomfort [Not Recovered/Not Resolved]
  - Oral pain [Not Recovered/Not Resolved]
  - Stomatitis [Not Recovered/Not Resolved]
  - Pain in extremity [Recovered/Resolved]
  - Crying [Unknown]
  - Diarrhoea [Not Recovered/Not Resolved]
  - Dysphagia [Not Recovered/Not Resolved]
  - Weight decreased [Recovered/Resolved]
  - Feeling abnormal [Unknown]
  - Throat tightness [Not Recovered/Not Resolved]
  - Oropharyngeal pain [Not Recovered/Not Resolved]
  - Erythema [Recovered/Resolved]
  - Mouth ulceration [Recovered/Resolved]

NARRATIVE: CASE EVENT DATE: 2015
